FAERS Safety Report 5443057-1 (Version None)
Quarter: 2007Q3

REPORT INFORMATION
  Report Type: 
  Country: None (occurrence: None)
  Receive Date: 20070905
  Receipt Date: 20070903
  Transmission Date: 20080115
  Serious: Yes (Hospitalization, Other)
  Sender: FDA-Public Use
  Company Number: PHRM2007FR02089

PATIENT
  Age: 67 Year
  Sex: Female

DRUGS (16)
  1. TEGRETOL [Suspect]
     Indication: EPILEPSY
     Dosage: 1000 MG/DAY
     Route: 048
     Dates: end: 20070705
  2. TEGRETOL [Suspect]
     Dosage: 200 MG/DAY
     Route: 048
     Dates: start: 20070706, end: 20070712
  3. TEGRETOL [Suspect]
     Dosage: 400 MG/DAY
     Route: 048
     Dates: start: 20070713, end: 20070723
  4. TEGRETOL [Suspect]
     Dosage: 800 MG/DAY
     Route: 048
     Dates: start: 20070724, end: 20070726
  5. TEGRETOL [Suspect]
     Dosage: 800 MG/DAY
     Route: 048
     Dates: start: 20070727
  6. IZILOX [Suspect]
     Dosage: 400 MG/DAY
     Route: 048
     Dates: start: 20070707, end: 20070717
  7. ESOMEPRAZOLE MAGNESIUM [Suspect]
     Indication: GASTRIC ULCER
     Dosage: 40 MG, UNK
     Route: 048
     Dates: start: 20070711, end: 20070725
  8. LASIX [Concomitant]
     Dosage: 40 MG/DAY
     Route: 048
     Dates: start: 20070722, end: 20070725
  9. LASIX [Concomitant]
     Dosage: 80 MG/DAY
     Dates: start: 20070726
  10. CALCIPARINE [Concomitant]
     Dosage: 0.2 ML, BID
     Route: 058
     Dates: start: 20070703
  11. TAREG [Concomitant]
     Indication: HYPERTENSION
     Dosage: 80 MG, QD
     Route: 048
     Dates: start: 20070712
  12. URBANYL [Concomitant]
     Dosage: 15 MG/DAY
     Route: 048
     Dates: start: 20070713, end: 20070717
  13. URBANYL [Concomitant]
     Dosage: 20 MG/DAY
     Route: 048
     Dates: start: 20070718
  14. DUPHALAC /NET/ [Concomitant]
     Dosage: 1 DF, QD
     Route: 048
     Dates: start: 20070717
  15. NOVONORM [Concomitant]
     Route: 048
  16. PEVARYL [Concomitant]
     Route: 061
     Dates: start: 20070707

REACTIONS (10)
  - ANOREXIA [None]
  - COGNITIVE DISORDER [None]
  - CONFUSIONAL STATE [None]
  - GAIT DISTURBANCE [None]
  - GASTRIC ULCER [None]
  - HEADACHE [None]
  - LEUKOPENIA [None]
  - METABOLIC ENCEPHALOPATHY [None]
  - NEUTROPENIA [None]
  - VOMITING [None]
